FAERS Safety Report 13854576 (Version 2)
Quarter: 2017Q3

REPORT INFORMATION
  Report Type: Spontaneous
  Country: US (occurrence: US)
  Receive Date: 20170810
  Receipt Date: 20170831
  Transmission Date: 20171127
  Serious: No
  Sender: FDA-Public Use
  Company Number: US-BAYER-2017-139716

PATIENT
  Age: 83 Year
  Sex: Female
  Weight: 63.49 kg

DRUGS (3)
  1. MIRALAX [Suspect]
     Active Substance: POLYETHYLENE GLYCOL 3350
     Indication: GASTROINTESTINAL DISORDER
     Dosage: 1 DF, QD
     Route: 048
     Dates: start: 2014
  2. MIRALAX [Suspect]
     Active Substance: POLYETHYLENE GLYCOL 3350
     Indication: GASTROINTESTINAL DISORDER
     Dosage: 2 DF, QD
     Route: 048
     Dates: start: 2017
  3. MIRALAX [Suspect]
     Active Substance: POLYETHYLENE GLYCOL 3350
     Indication: GASTROINTESTINAL DISORDER
     Dosage: 1 DF, QD ONE TIME PER DAY
     Dates: start: 2016

REACTIONS (7)
  - Inappropriate prescribing [Unknown]
  - Drug ineffective [Unknown]
  - Wrong technique in product usage process [None]
  - Incorrect dosage administered [Unknown]
  - Constipation [Recovered/Resolved]
  - Product use issue [Unknown]
  - Faeces hard [Recovered/Resolved]

NARRATIVE: CASE EVENT DATE: 2014
